FAERS Safety Report 9839299 (Version 1)
Quarter: 2014Q1

REPORT INFORMATION
  Report Type: Spontaneous
  Country: NL (occurrence: NL)
  Receive Date: 20140123
  Receipt Date: 20140123
  Transmission Date: 20141002
  Serious: Yes (Hospitalization, Other)
  Sender: FDA-Public Use
  Company Number: PHHY2014NL006926

PATIENT
  Sex: Female
  Weight: 54 kg

DRUGS (6)
  1. CLOZAPINE [Suspect]
     Indication: SCHIZOPHRENIA
     Dosage: UNK (DIFFERENT DOSES)
     Dates: start: 2001
  2. CLOZAPINE [Interacting]
     Dosage: UNK (OVER DOSES)
     Dates: start: 2001
  3. CLOZAPINE [Interacting]
     Dosage: UNK (DOSE REDUCTION)
     Dates: start: 2001
  4. SERESTA [Interacting]
     Indication: ANXIETY
     Dosage: 10 MG, UNK
     Dates: start: 1970
  5. SERESTA [Interacting]
     Dosage: UNK (OVER DOSE)
     Dates: start: 1970
  6. SERESTA [Interacting]
     Dosage: UNK (DOSE REDUCTION)
     Dates: start: 1970

REACTIONS (7)
  - Intentional overdose [Recovered/Resolved]
  - Memory impairment [Not Recovered/Not Resolved]
  - Drug interaction [Recovered/Resolved]
  - Incontinence [Unknown]
  - Apathy [Recovered/Resolved]
  - Flat affect [Recovered/Resolved]
  - Activities of daily living impaired [Recovered/Resolved]
